FAERS Safety Report 23221955 (Version 1)
Quarter: 2023Q4

REPORT INFORMATION
  Report Type: Spontaneous
  Country: US (occurrence: US)
  Receive Date: 20231123
  Receipt Date: 20231123
  Transmission Date: 20240110
  Serious: No
  Sender: FDA-Public Use
  Company Number: US-drreddys-SPO/USA/23/0183107

PATIENT
  Age: 14 Year
  Sex: Female

DRUGS (3)
  1. ACCUTANE [Suspect]
     Active Substance: ISOTRETINOIN
     Indication: Product used for unknown indication
     Dosage: RMA ISSUE DATE: 27 APRIL 2023 04:53:16 PM, 25 MAY 2023 02:20:23 PM, 07 AUGUST 2023 12:27:40 PM, 31 A
  2. ACCUTANE [Suspect]
     Active Substance: ISOTRETINOIN
     Dosage: RMA ISSUE DATE: 25 MAY 2023 02:25:15 PM, 27 JUNE 2023 02:57:30 PM, 07 AUGUST 2023 12:27:40 PM, 02 OC
  3. ACCUTANE [Suspect]
     Active Substance: ISOTRETINOIN
     Dosage: RMA ISSUE DATE: 27 APRIL 2023 04:53:16 PM

REACTIONS (1)
  - Adverse drug reaction [Unknown]
